FAERS Safety Report 10099569 (Version 2)
Quarter: 2014Q2

REPORT INFORMATION
  Report Type: Spontaneous
  Country: US (occurrence: US)
  Receive Date: 20140423
  Receipt Date: 20140423
  Transmission Date: 20141212
  Serious: Yes (Hospitalization, Other)
  Sender: FDA-Public Use
  Company Number: US-GILEAD-2014-0095742

PATIENT
  Sex: Female

DRUGS (4)
  1. LETAIRIS [Suspect]
     Indication: PULMONARY HYPERTENSION
     Dosage: 10 MG, QD
     Route: 065
     Dates: start: 20100827
  2. LETAIRIS [Suspect]
     Indication: CORONARY ARTERY DISEASE
  3. ADCIRCA [Concomitant]
  4. VELETRI [Concomitant]

REACTIONS (1)
  - Pulmonary arterial hypertension [Unknown]
